FAERS Safety Report 12626744 (Version 2)
Quarter: 2019Q2

REPORT INFORMATION
  Report Type: Spontaneous
  Country: US (occurrence: US)
  Receive Date: 20160805
  Receipt Date: 20190401
  Transmission Date: 20190711
  Serious: No
  Sender: FDA-Public Use
  Company Number: US-VANDA PHARMACEUTICALS, INC-2016TASUS001295

PATIENT
  Age: 54 Year
  Sex: Male

DRUGS (2)
  1. HETLIOZ [Suspect]
     Active Substance: TASIMELTEON
     Indication: CIRCADIAN RHYTHM SLEEP DISORDER
     Dosage: 20 MG, EVERY 24 HOURS
     Route: 048
  2. HETLIOZ [Suspect]
     Active Substance: TASIMELTEON
     Dosage: 40 UNK, UNK

REACTIONS (2)
  - Incorrect dose administered [Unknown]
  - Sleep disorder [Not Recovered/Not Resolved]
